FAERS Safety Report 4937273-2 (Version None)
Quarter: 2006Q1

REPORT INFORMATION
  Report Type: 
  Country: None (occurrence: None)
  Receive Date: 20060307
  Receipt Date: 20060307
  Transmission Date: 20060701
  Serious: Yes (Hospitalization)
  Sender: FDA-Public Use
  Company Number: None

PATIENT
  Sex: Male
  Weight: 95.4 kg

DRUGS (7)
  1. TINZAPAIN [Suspect]
     Indication: DEEP VEIN THROMBOSIS
     Dosage: 4500 IU, DAILY, SUBCUTANEOUSLY
     Route: 058
     Dates: start: 20051201, end: 20060301
  2. DECADRON SRC [Concomitant]
  3. TYLENOL W/ CODEINE NO. 3 [Concomitant]
  4. SENOKOT [Concomitant]
  5. DILANTIN [Concomitant]
  6. PROTONIX [Concomitant]
  7. SYNTHROID [Concomitant]

REACTIONS (4)
  - DIZZINESS [None]
  - HEADACHE [None]
  - NAUSEA [None]
  - VOMITING [None]
